FAERS Safety Report 18621741 (Version 4)
Quarter: 2021Q4

REPORT INFORMATION
  Report Type: Spontaneous
  Country: CA (occurrence: CA)
  Receive Date: 20201215
  Receipt Date: 20211012
  Transmission Date: 20220303
  Serious: Yes (Other)
  Sender: FDA-Public Use
  Company Number: CA-CELLTRION INC.-2020CA022426

PATIENT

DRUGS (17)
  1. INFLECTRA [Suspect]
     Active Substance: INFLIXIMAB-DYYB
     Indication: Colitis ulcerative
     Dosage: 800 MG, 0, 2, 6 THEN EVERY 8 WEEKS/WEEK 0 DOSE
     Route: 042
     Dates: start: 20200513, end: 20200513
  2. INFLECTRA [Suspect]
     Active Substance: INFLIXIMAB-DYYB
     Dosage: 800 MG, 4 WEEK/WEEK 2 DOSE
     Route: 042
     Dates: start: 20200527, end: 20200527
  3. INFLECTRA [Suspect]
     Active Substance: INFLIXIMAB-DYYB
     Dosage: 800 MG, 8 WEEK/WEEK 6 DOSE
     Route: 042
     Dates: start: 20200630, end: 20200630
  4. INFLECTRA [Suspect]
     Active Substance: INFLIXIMAB-DYYB
     Dosage: 800 MG, EVERY 8 WEEKS
     Route: 042
     Dates: start: 20200820
  5. INFLECTRA [Suspect]
     Active Substance: INFLIXIMAB-DYYB
     Dosage: 800 MG, 0, 2, 6 THEN EVERY 8 WEEKS/WEEK 0 DOSE
     Route: 042
     Dates: start: 20201207
  6. INFLECTRA [Suspect]
     Active Substance: INFLIXIMAB-DYYB
     Dosage: 800 MG, EVERY 8 WEEKS
     Route: 042
     Dates: start: 20200201, end: 20200201
  7. INFLECTRA [Suspect]
     Active Substance: INFLIXIMAB-DYYB
     Dosage: 800 MG, EVERY 8 WEEKS
     Route: 042
     Dates: start: 20210326
  8. ALENDRONATE [Concomitant]
     Active Substance: ALENDRONATE SODIUM
     Dosage: 1 DF
  9. CALCIUM [Concomitant]
     Active Substance: CALCIUM
     Dosage: 1 DF
  10. CITALOPRAM [Concomitant]
     Active Substance: CITALOPRAM HYDROBROMIDE
     Dosage: 1 DF
     Route: 065
  11. CLOBAZAM [Concomitant]
     Active Substance: CLOBAZAM
     Dosage: 1 DF
  12. LAMOTRIGINE [Concomitant]
     Active Substance: LAMOTRIGINE
     Dosage: 1 DF
  13. PANTOPRAZOLE [Concomitant]
     Active Substance: PANTOPRAZOLE
     Dosage: 1 DF
  14. PREDNISONE [Concomitant]
     Active Substance: PREDNISONE
     Dosage: 1 DF
  15. MESALAMINE [Concomitant]
     Active Substance: MESALAMINE
     Dosage: 1 DF
  16. SULFATRIM [Concomitant]
     Active Substance: SULFAMETHOXAZOLE\TRIMETHOPRIM
     Dosage: 1 DF
  17. CHOLECALCIFEROL [Concomitant]
     Active Substance: CHOLECALCIFEROL
     Dosage: 1 DF

REACTIONS (7)
  - Scleritis [Recovered/Resolved]
  - Nausea [Recovered/Resolved]
  - Blood pressure increased [Not Recovered/Not Resolved]
  - Pain in extremity [Unknown]
  - Arthralgia [Unknown]
  - Off label use [Unknown]
  - Intentional product use issue [Unknown]

NARRATIVE: CASE EVENT DATE: 20200501
